FAERS Safety Report 19342684 (Version 1)
Quarter: 2021Q2

REPORT INFORMATION
  Report Type: Spontaneous
  Country: US (occurrence: US)
  Receive Date: 20210530
  Receipt Date: 20210530
  Transmission Date: 20210717
  Serious: Yes (Other)
  Sender: FDA-Public Use
  Company Number: US-PURDUE-USA-2020-0205804

PATIENT
  Sex: Female

DRUGS (4)
  1. HYDROCODONE BITARTRATE AND ACETAMINOPHEN [Suspect]
     Active Substance: ACETAMINOPHEN\HYDROCODONE BITARTRATE
     Indication: ANALGESIC THERAPY
     Dosage: UNKNOWN DOSAGE
     Route: 048
     Dates: start: 2010, end: 2015
  2. OXYCODONE HCL CR TABLETS (SIMILAR TO NDA 22?272) [Suspect]
     Active Substance: OXYCODONE HYDROCHLORIDE
     Indication: ANALGESIC THERAPY
     Dosage: UNKNONW DOSAGE
     Route: 048
     Dates: start: 2010, end: 2015
  3. TRAMADOL. [Suspect]
     Active Substance: TRAMADOL
     Indication: ANALGESIC THERAPY
     Dosage: UNKNOWN DOSAGE
     Route: 065
     Dates: start: 2010, end: 2015
  4. OXYCONTIN [Suspect]
     Active Substance: OXYCODONE HYDROCHLORIDE
     Indication: ANALGESIC THERAPY
     Dosage: UNKNOWN DOSAGE
     Route: 048
     Dates: start: 2010, end: 2015

REACTIONS (8)
  - Mood swings [Unknown]
  - Drug tolerance [Unknown]
  - Anxiety [Unknown]
  - Drug dependence [Recovered/Resolved]
  - Depression [Unknown]
  - Drug abuse [Recovered/Resolved]
  - Drug withdrawal syndrome [Unknown]
  - Impaired driving ability [Unknown]
